FAERS Safety Report 5444648-4 (Version None)
Quarter: 2007Q3

REPORT INFORMATION
  Report Type: 
  Country: None (occurrence: None)
  Receive Date: 20070906
  Receipt Date: 20070115
  Transmission Date: 20080115
  Serious: No
  Sender: FDA-Public Use
  Company Number: A0635674A

PATIENT
  Age: 82 Year
  Sex: Female

DRUGS (5)
  1. REQUIP [Suspect]
     Indication: DRUG USE FOR UNKNOWN INDICATION
     Dosage: 1MG SINGLE DOSE
     Route: 048
     Dates: start: 20070113, end: 20070113
  2. UNKNOWN [Concomitant]
  3. UNKNOWN [Concomitant]
  4. LISTROL [Concomitant]
  5. ZOCOR [Concomitant]

REACTIONS (4)
  - FEELING HOT [None]
  - INSOMNIA [None]
  - MUSCLE SPASMS [None]
  - OVERDOSE [None]
